FAERS Safety Report 15992309 (Version 2)
Quarter: 2019Q1

REPORT INFORMATION
  Report Type: Spontaneous
  Country: US (occurrence: US)
  Receive Date: 20190221
  Receipt Date: 20190311
  Transmission Date: 20190418
  Serious: No
  Sender: FDA-Public Use
  Company Number: US-ALLERGAN-1769161US

PATIENT
  Age: 80 Year
  Sex: Female
  Weight: 52.15 kg

DRUGS (2)
  1. OXYTROL [Suspect]
     Active Substance: OXYBUTYNIN
     Indication: CYSTOCELE
     Dosage: UNK
     Route: 062
  2. OXYTROL [Suspect]
     Active Substance: OXYBUTYNIN
     Dosage: 1 PATCH EVERY 3 DAYS
     Route: 062

REACTIONS (2)
  - Off label use [Unknown]
  - Product adhesion issue [Unknown]

NARRATIVE: CASE EVENT DATE: 2017
